FAERS Safety Report 9651950 (Version 5)
Quarter: 2015Q1

REPORT INFORMATION
  Report Type: Spontaneous
  Country: US (occurrence: US)
  Receive Date: 20131029
  Receipt Date: 20150330
  Transmission Date: 20150721
  Serious: Yes (Other)
  Sender: FDA-Public Use
  Company Number: PHHY2011US47818

PATIENT
  Sex: Male

DRUGS (13)
  1. SUFENTANIL [Suspect]
     Active Substance: SUFENTANIL
     Indication: PRODUCT USED FOR UNKNOWN INDICATION
     Dosage: 4.9
     Route: 037
  2. FENTANYL. [Suspect]
     Active Substance: FENTANYL
     Indication: PRODUCT USED FOR UNKNOWN INDICATION
     Dosage: 150 MG, UNK
     Route: 062
  3. METHADONE [Suspect]
     Active Substance: METHADONE HYDROCHLORIDE
     Indication: PAIN
     Dosage: UNK
     Route: 065
  4. BUPIVACAINE [Suspect]
     Active Substance: BUPIVACAINE
     Indication: PRODUCT USED FOR UNKNOWN INDICATION
     Dosage: UNK UKN, UNK
     Route: 065
  5. OXYCONTIN [Suspect]
     Active Substance: OXYCODONE HYDROCHLORIDE
     Indication: PAIN
     Dosage: UNK UKN, UNK
     Route: 065
  6. HYDROCODONE [Suspect]
     Active Substance: HYDROCODONE
     Indication: PRODUCT USED FOR UNKNOWN INDICATION
     Dosage: 6 DF DAILY
     Route: 048
  7. FENTANYL. [Suspect]
     Active Substance: FENTANYL
     Dosage: 2 PATCHES (12.5 MG) DAILY
     Route: 062
  8. NEURONTIN [Suspect]
     Active Substance: GABAPENTIN
     Indication: PAIN
     Dosage: 300 MG DAILY
     Route: 065
  9. CLONIDINE. [Suspect]
     Active Substance: CLONIDINE
     Indication: PRODUCT USED FOR UNKNOWN INDICATION
     Dosage: 3 MG, QD
     Route: 037
  10. DILAUDID [Suspect]
     Active Substance: HYDROMORPHONE HYDROCHLORIDE
     Dosage: 1.0 UNK UNK
     Route: 037
  11. BACLOFEN INTRATHECAL [Suspect]
     Active Substance: BACLOFEN
     Indication: PAIN
     Dosage: UNK
     Route: 037
  12. DILAUDID [Suspect]
     Active Substance: HYDROMORPHONE HYDROCHLORIDE
     Indication: PRODUCT USED FOR UNKNOWN INDICATION
     Dosage: 3 MG, QD
     Route: 037
     Dates: start: 20130606
  13. LORTAB [Suspect]
     Active Substance: ACETAMINOPHEN\HYDROCODONE BITARTRATE
     Indication: PAIN
     Dosage: UNK UKN, UNK
     Route: 065

REACTIONS (13)
  - Weight decreased [Recovered/Resolved]
  - Pain [Recovered/Resolved]
  - Therapeutic response decreased [Recovered/Resolved]
  - Hypoaesthesia [Recovered/Resolved]
  - Back injury [Recovered/Resolved]
  - Musculoskeletal pain [Recovered/Resolved]
  - Spinal pain [Recovered/Resolved]
  - Implant site inflammation [Recovered/Resolved]
  - Back pain [Unknown]
  - Performance status decreased [Recovered/Resolved]
  - Joint injury [Unknown]
  - Nerve injury [Unknown]
  - Pain in extremity [Recovered/Resolved]
